FAERS Safety Report 12825339 (Version 1)
Quarter: 2016Q4

REPORT INFORMATION
  Report Type: Spontaneous
  Country: DE (occurrence: DE)
  Receive Date: 20161007
  Receipt Date: 20161007
  Transmission Date: 20170207
  Serious: Yes (Other)
  Sender: FDA-Public Use
  Company Number: DE-MYLANLABS-2016M1043040

PATIENT

DRUGS (1)
  1. DEXAMETHASONE. [Suspect]
     Active Substance: DEXAMETHASONE
     Indication: STEROID THERAPY
     Route: 065

REACTIONS (3)
  - Cytomegalovirus infection [Recovering/Resolving]
  - Thrombocytopenia [Recovering/Resolving]
  - Encephalitis cytomegalovirus [Recovering/Resolving]
